FAERS Safety Report 20875743 (Version 1)
Quarter: 2022Q2

REPORT INFORMATION
  Report Type: Spontaneous
  Country: GB (occurrence: GB)
  Receive Date: 20220526
  Receipt Date: 20220526
  Transmission Date: 20220720
  Serious: Yes (Hospitalization, Disabling, Other)
  Sender: FDA-Public Use
  Company Number: GB-MHRA-MED-202205131550037450-5VPET

PATIENT
  Age: 75 Year
  Sex: Female
  Weight: 46 kg

DRUGS (7)
  1. PHENYTOIN [Suspect]
     Active Substance: PHENYTOIN
     Indication: Trigeminal neuralgia
     Route: 065
     Dates: start: 202201
  2. PHENYTOIN [Suspect]
     Active Substance: PHENYTOIN
     Dosage: UNKNOWN
     Route: 065
     Dates: start: 202201
  3. OXCARBAZEPINE [Suspect]
     Active Substance: OXCARBAZEPINE
     Indication: Trigeminal neuralgia
     Route: 065
     Dates: start: 20220429, end: 20220504
  4. ATORVASTATIN [Concomitant]
     Active Substance: ATORVASTATIN
     Indication: Product used for unknown indication
     Dosage: UNKNOWN
     Route: 065
  5. WARFARIN [Concomitant]
     Active Substance: WARFARIN
     Indication: Atrial fibrillation
     Dosage: UNKNOWN
     Route: 065
  6. XYLOCAINE [Concomitant]
     Active Substance: LIDOCAINE HYDROCHLORIDE
     Indication: Trigeminal neuralgia
     Dosage: UNKNOWN
     Route: 065
  7. PHENYTOIN [Concomitant]
     Active Substance: PHENYTOIN
     Indication: Trigeminal neuralgia
     Dosage: UNKNOWN
     Route: 065
     Dates: start: 202201

REACTIONS (3)
  - Paranoia [Not Recovered/Not Resolved]
  - Swollen tongue [Unknown]
  - Fear [Unknown]

NARRATIVE: CASE EVENT DATE: 20220429
